FAERS Safety Report 22049226 (Version 1)
Quarter: 2023Q1

REPORT INFORMATION
  Report Type: Spontaneous
  Country: US (occurrence: None)
  Receive Date: 20230228
  Receipt Date: 20230228
  Transmission Date: 20230417
  Serious: Yes (Life-Threatening, Disabling)
  Sender: FDA-Public Use
  Company Number: None

PATIENT
  Age: 66 Year
  Sex: Female
  Weight: 72 kg

DRUGS (13)
  1. CLONAZEPAM [Suspect]
     Active Substance: CLONAZEPAM
     Indication: Generalised anxiety disorder
     Dosage: OTHER QUANTITY : 1 TABLET(S);?FREQUENCY : DAILY;?
     Route: 048
     Dates: start: 19910731, end: 20201201
  2. CLONAZEPAM [Suspect]
     Active Substance: CLONAZEPAM
     Indication: Insomnia
  3. GABAPENTIN [Concomitant]
     Active Substance: GABAPENTIN
  4. NABUMETONE [Concomitant]
     Active Substance: NABUMETONE
  5. METHYLPHENIDATE [Concomitant]
     Active Substance: METHYLPHENIDATE
  6. OMEGA 3 [Concomitant]
     Active Substance: CAPSAICIN
  7. KRILL OIL [Concomitant]
  8. B1 [Concomitant]
  9. MAGNESIUM [Concomitant]
  10. VITAMIN D3 [Concomitant]
     Active Substance: CHOLECALCIFEROL
  11. MENAQUINONE 6 [Concomitant]
     Active Substance: MENAQUINONE 6
  12. VITAMIN A [Concomitant]
     Active Substance: VITAMIN A
  13. VITAMIN E [Concomitant]
     Active Substance: .ALPHA.-TOCOPHEROL

REACTIONS (27)
  - Drug withdrawal syndrome [None]
  - Panic disorder [None]
  - Palpitations [None]
  - Insomnia [None]
  - Sleep deficit [None]
  - Nightmare [None]
  - Hyperventilation [None]
  - Tremor [None]
  - Confusional state [None]
  - Migraine [None]
  - Crying [None]
  - Speech disorder [None]
  - Hyperhidrosis [None]
  - Vomiting [None]
  - Diarrhoea [None]
  - Pruritus [None]
  - Skin haemorrhage [None]
  - Electric shock sensation [None]
  - Burning sensation [None]
  - Muscle spasms [None]
  - Dysphagia [None]
  - Tinnitus [None]
  - Impaired driving ability [None]
  - Ventricular tachycardia [None]
  - Anxiety [None]
  - Myalgia [None]
  - Muscle spasms [None]

NARRATIVE: CASE EVENT DATE: 20201201
